FAERS Safety Report 14250312 (Version 1)
Quarter: 2017Q4

REPORT INFORMATION
  Report Type: Spontaneous
  Country: US (occurrence: US)
  Receive Date: 20171205
  Receipt Date: 20171205
  Transmission Date: 20180321
  Serious: Yes (Death, Hospitalization)
  Sender: FDA-Public Use
  Company Number: US-CIPLA LTD.-2017US21868

PATIENT

DRUGS (3)
  1. CALCIUM ACETATE. [Suspect]
     Active Substance: CALCIUM ACETATE
     Dosage: UNK
     Route: 051
  2. SACCHAROMYCES BOULARDII [Suspect]
     Active Substance: SACCHAROMYCES CEREVISIAE
     Dosage: UNK
     Route: 051
  3. VANCOMYCIN [Suspect]
     Active Substance: VANCOMYCIN
     Dosage: UNK
     Route: 051

REACTIONS (2)
  - Toxicity to various agents [Fatal]
  - Medication error [Unknown]
